FAERS Safety Report 21746767 (Version 1)
Quarter: 2022Q4

REPORT INFORMATION
  Report Type: Spontaneous
  Country: US (occurrence: None)
  Receive Date: 20221216
  Receipt Date: 20221216
  Transmission Date: 20230113
  Serious: No
  Sender: FDA-Public Use
  Company Number: None

PATIENT
  Sex: Male

DRUGS (1)
  1. CAPECITABINE [Suspect]
     Active Substance: CAPECITABINE
     Dosage: 2000 MG BID ORAL?
     Route: 048

REACTIONS (7)
  - Palmar-plantar erythrodysaesthesia syndrome [None]
  - Therapy interrupted [None]
  - Skin exfoliation [None]
  - Pain of skin [None]
  - Skin disorder [None]
  - Nausea [None]
  - Fatigue [None]
